FAERS Safety Report 7373103-X (Version None)
Quarter: 2011Q1

REPORT INFORMATION
  Report Type: 
  Country: None (occurrence: None)
  Receive Date: 20110316
  Receipt Date: 20110217
  Transmission Date: 20110831
  Serious: Yes (Other)
  Sender: FDA-Public Use
  Company Number: NL-001536

PATIENT
  Sex: Male

DRUGS (1)
  1. NAGLAZYME [Suspect]
     Indication: MUCOPOLYSACCHARIDOSIS VI
     Dosage: DOSE AND FREQUENCY NOT REPORTED, INTRAVENOUS DRIP
     Route: 041

REACTIONS (2)
  - INTRACRANIAL PRESSURE INCREASED [None]
  - CEREBROVASCULAR DISORDER [None]
